FAERS Safety Report 9437277 (Version 1)
Quarter: 2013Q3

REPORT INFORMATION
  Report Type: Report from Study
  Country: AU (occurrence: AU)
  Receive Date: 20130802
  Receipt Date: 20130802
  Transmission Date: 20140515
  Serious: Yes (Hospitalization)
  Sender: FDA-Public Use
  Company Number: PHHY2013AU077271

PATIENT
  Sex: Female

DRUGS (1)
  1. CLOZARIL [Suspect]
     Dosage: 600 MG
     Dates: start: 20130228

REACTIONS (3)
  - Fall [Unknown]
  - Convulsion [Unknown]
  - Antipsychotic drug level increased [Unknown]
